FAERS Safety Report 22951601 (Version 5)
Quarter: 2023Q4

REPORT INFORMATION
  Report Type: Spontaneous
  Country: US (occurrence: US)
  Receive Date: 20230918
  Receipt Date: 20231116
  Transmission Date: 20240110
  Serious: Yes (Hospitalization, Other)
  Sender: FDA-Public Use
  Company Number: US-BRISTOL-MYERS SQUIBB COMPANY-2023-131169

PATIENT
  Age: 68 Year
  Sex: Male

DRUGS (1)
  1. LENALIDOMIDE [Suspect]
     Active Substance: LENALIDOMIDE
     Indication: Plasma cell myeloma
     Dosage: TAKE 1 CAPSULE BY MOUTH EVERY DAY FOR 14 DAYS THEN HOLD FOR 7 DAYS. REPEAT EVERY 21 DAYS.
     Route: 048
     Dates: start: 20230706

REACTIONS (4)
  - Off label use [Unknown]
  - COVID-19 [Recovering/Resolving]
  - Product distribution issue [Unknown]
  - Product dose omission issue [Recovered/Resolved]
